FAERS Safety Report 15615853 (Version 2)
Quarter: 2018Q4

REPORT INFORMATION
  Report Type: Spontaneous
  Country: IT (occurrence: IT)
  Receive Date: 20181114
  Receipt Date: 20181129
  Transmission Date: 20190205
  Serious: Yes (Other)
  Sender: FDA-Public Use
  Company Number: IT-AUROBINDO-AUR-APL-2018-055102

PATIENT
  Age: 41 Year
  Sex: Female

DRUGS (7)
  1. PROGYNOVA                          /00045402/ [Suspect]
     Active Substance: ESTRADIOL VALERATE
     Indication: IN VITRO FERTILISATION
     Dosage: 4 MILLIGRAM (REPORTED AS ^300 IU^,(SCHEDULED TO BE ADMINISTERED FOR 8 DAYS; RECEIVED DURING IN VITRO
     Route: 065
  2. LAMOTRIGINE. [Suspect]
     Active Substance: LAMOTRIGINE
     Dosage: 350 MG, QD
     Route: 065
  3. FOLLITROPIN BETA [Suspect]
     Active Substance: FOLLITROPIN
     Indication: IN VITRO FERTILISATION
     Dosage: UNK
     Route: 065
  4. CLOBAZAM. [Concomitant]
     Active Substance: CLOBAZAM
     Indication: EPILEPSY
     Dosage: 10 MG, BID
     Route: 065
  5. FOLLITROPIN BETA [Suspect]
     Active Substance: FOLLITROPIN
     Indication: HORMONE THERAPY
     Dosage: 300 IU, UNK (SCHEDULED TO BE ADMINISTERED FOR 8 DAYS; RECEIVED DURING IN VITRO FERTILIZATION FRO)
     Route: 065
  6. ESTRADIOL VALERATE. [Suspect]
     Active Substance: ESTRADIOL VALERATE
     Indication: IN VITRO FERTILISATION
     Dosage: 4 MILLIGRAM
     Route: 065
  7. LAMOTRIGINE. [Suspect]
     Active Substance: LAMOTRIGINE
     Indication: PARTIAL SEIZURES
     Dosage: 450 MG, QD
     Route: 065

REACTIONS (2)
  - Exposure during pregnancy [Unknown]
  - Seizure [Unknown]
